FAERS Safety Report 19620724 (Version 2)
Quarter: 2021Q4

REPORT INFORMATION
  Report Type: Spontaneous
  Country: JP (occurrence: JP)
  Receive Date: 20210728
  Receipt Date: 20211114
  Transmission Date: 20220303
  Serious: Yes (Death, Other)
  Sender: FDA-Public Use
  Company Number: JP-NOVARTISPH-NVSJ2021JP011141

PATIENT
  Age: 93 Year
  Sex: Male

DRUGS (1)
  1. ENTRESTO [Suspect]
     Active Substance: SACUBITRIL\VALSARTAN
     Indication: Cardiac failure chronic
     Dosage: 50 MG
     Route: 048
     Dates: start: 202101, end: 202107

REACTIONS (4)
  - Acute kidney injury [Fatal]
  - Concomitant disease aggravated [Fatal]
  - Blood creatinine increased [Fatal]
  - Pneumonia [Fatal]

NARRATIVE: CASE EVENT DATE: 20210714
